FAERS Safety Report 13269165 (Version 1)
Quarter: 2017Q1

REPORT INFORMATION
  Report Type: Spontaneous
  Country: FR (occurrence: FR)
  Receive Date: 20170224
  Receipt Date: 20170224
  Transmission Date: 20170428
  Serious: Yes (Death, Hospitalization, Other)
  Sender: FDA-Public Use
  Company Number: FR-BRISTOL-MYERS SQUIBB COMPANY-BMS-2017-014150

PATIENT
  Age: 90 Year
  Sex: Male

DRUGS (1)
  1. ELIQUIS [Suspect]
     Active Substance: APIXABAN
     Indication: CEREBROVASCULAR ACCIDENT PROPHYLAXIS
     Dosage: 5 MG, PER DAY
     Route: 048
     Dates: end: 20161217

REACTIONS (8)
  - Cardiac failure [Unknown]
  - Diverticulum intestinal [Unknown]
  - Candida sepsis [Fatal]
  - Melaena [Recovered/Resolved]
  - Confusional state [Unknown]
  - Transfusion [Unknown]
  - Anaemia [Recovered/Resolved]
  - Lung disorder [Unknown]

NARRATIVE: CASE EVENT DATE: 20161212
